FAERS Safety Report 8440984-8 (Version None)
Quarter: 2012Q2

REPORT INFORMATION
  Report Type: 
  Country: None (occurrence: None)
  Receive Date: 20120615
  Receipt Date: 20110628
  Transmission Date: 20120825
  Serious: No
  Sender: FDA-Public Use
  Company Number: US-NOVEN-11US002734

PATIENT
  Sex: Female
  Weight: 47.619 kg

DRUGS (1)
  1. DAYTRANA [Suspect]
     Indication: ATTENTION DEFICIT/HYPERACTIVITY DISORDER
     Dosage: 20 MG, UNKNOWN
     Route: 062
     Dates: start: 20110617, end: 20110617

REACTIONS (3)
  - APPLICATION SITE PRURITUS [None]
  - APPLICATION SITE PAIN [None]
  - PRODUCT QUALITY ISSUE [None]
